FAERS Safety Report 18394175 (Version 1)
Quarter: 2020Q4

REPORT INFORMATION
  Report Type: Spontaneous
  Country: US (occurrence: US)
  Receive Date: 20201016
  Receipt Date: 20201016
  Transmission Date: 20210114
  Serious: Yes (Hospitalization)
  Sender: FDA-Public Use
  Company Number: US-BAYER-2020-218908

PATIENT
  Age: 74 Year
  Sex: Female

DRUGS (3)
  1. CIPRO [Suspect]
     Active Substance: CIPROFLOXACIN HYDROCHLORIDE
     Indication: URINARY TRACT INFECTION
     Dosage: 800MG-160MG BID
     Route: 048
     Dates: start: 20200903, end: 20200910
  2. PALBOCICLIB [Suspect]
     Active Substance: PALBOCICLIB
     Indication: BREAST CANCER METASTATIC
     Dosage: 125 MG, UNK
     Route: 048
     Dates: start: 20181203, end: 20200914
  3. LETROZOLE. [Suspect]
     Active Substance: LETROZOLE
     Indication: BREAST CANCER METASTATIC
     Dosage: 2.5 MG, QD
     Route: 048
     Dates: start: 20181203, end: 20200914

REACTIONS (6)
  - Myalgia [Recovered/Resolved]
  - Nausea [None]
  - Muscular weakness [None]
  - Constipation [None]
  - Dysuria [None]
  - Pain in extremity [Recovered/Resolved]

NARRATIVE: CASE EVENT DATE: 202009
